FAERS Safety Report 4877598-2 (Version None)
Quarter: 2006Q1

REPORT INFORMATION
  Report Type: 
  Country: None (occurrence: None)
  Receive Date: 20060109
  Receipt Date: 20051228
  Transmission Date: 20060701
  Serious: Yes (Other)
  Sender: FDA-Public Use
  Company Number: 2005173502

PATIENT
  Age: 75 Year
  Sex: Female
  Weight: 72.5755 kg

DRUGS (2)
  1. LIPITOR [Suspect]
     Indication: BLOOD CHOLESTEROL INCREASED
     Dosage: 10 MG (10 MG, 1 IN 2 D)
  2. ENALAPRIL MALEATE [Concomitant]

REACTIONS (5)
  - ASTHENOPIA [None]
  - ENZYME ABNORMALITY [None]
  - EYELID DISORDER [None]
  - MUSCULAR WEAKNESS [None]
  - VISUAL DISTURBANCE [None]
